FAERS Safety Report 11038165 (Version 1)
Quarter: 2015Q2

REPORT INFORMATION
  Report Type: Spontaneous
  Country: IT (occurrence: IT)
  Receive Date: 20150416
  Receipt Date: 20150416
  Transmission Date: 20150821
  Serious: Yes (Hospitalization)
  Sender: FDA-Public Use
  Company Number: IT-ASTRAZENECA-2015SE33886

PATIENT
  Age: 696 Week
  Sex: Male
  Weight: 85 kg

DRUGS (5)
  1. LUCEN [Suspect]
     Active Substance: ESOMEPRAZOLE
     Route: 048
     Dates: start: 20141213, end: 20141213
  2. ALCOHOL. [Concomitant]
     Active Substance: ALCOHOL
     Dates: start: 20141213, end: 20141213
  3. KLACID [Suspect]
     Active Substance: CLARITHROMYCIN
     Dosage: 4.5 G ONCE, NON-AZ PRODUCT
     Route: 048
     Dates: start: 20141213, end: 20141213
  4. ZIMOX [Suspect]
     Active Substance: AMOXICILLIN
     Dosage: 3 G WEEKLY, NON-AZ PRODUCT
     Route: 048
  5. ZIMOX [Suspect]
     Active Substance: AMOXICILLIN
     Dosage: 3 G ONCE, NON-AZ PRODUCT
     Route: 048
     Dates: start: 20141213, end: 20141213

REACTIONS (3)
  - Hypotonic-hyporesponsive episode [Recovered/Resolved]
  - Drug abuse [Unknown]
  - Vomiting [Recovered/Resolved]

NARRATIVE: CASE EVENT DATE: 20141213
